FAERS Safety Report 9786888 (Version 1)
Quarter: 2013Q4

REPORT INFORMATION
  Report Type: Spontaneous
  Country: FR (occurrence: FR)
  Receive Date: 20131227
  Receipt Date: 20131227
  Transmission Date: 20140711
  Serious: Yes (Other)
  Sender: FDA-Public Use
  Company Number: FR-ABBVIE-13P-056-1183106-00

PATIENT
  Age: 3 Month
  Sex: Male

DRUGS (3)
  1. DEPAKINE [Suspect]
     Indication: GRAND MAL CONVULSION
     Route: 048
     Dates: start: 20131124, end: 20131210
  2. BACTRIM [Suspect]
     Indication: PYELONEPHRITIS
     Route: 048
     Dates: start: 20131124, end: 20131210
  3. CEFTRIAXONE [Concomitant]
     Indication: PRODUCT USED FOR UNKNOWN INDICATION
     Dates: start: 20131120, end: 20131124

REACTIONS (4)
  - Erythema [Not Recovered/Not Resolved]
  - Purpura [Not Recovered/Not Resolved]
  - Vasculitis [Not Recovered/Not Resolved]
  - Neutropenia [Not Recovered/Not Resolved]
